FAERS Safety Report 6109162-1 (Version None)
Quarter: 2009Q1

REPORT INFORMATION
  Report Type: 
  Country: None (occurrence: None)
  Receive Date: 20090306
  Receipt Date: 20090219
  Transmission Date: 20090719
  Serious: Yes (Hospitalization)
  Sender: FDA-Public Use
  Company Number: JHP200900058

PATIENT
  Age: 68 Year
  Sex: Female

DRUGS (1)
  1. DANTRIUM [Suspect]
     Dosage: 75 MG DAILY, ORAL
     Route: 048

REACTIONS (1)
  - HYPONATRAEMIA [None]
